FAERS Safety Report 11415382 (Version 11)
Quarter: 2016Q3

REPORT INFORMATION
  Report Type: Spontaneous
  Country: CA (occurrence: CA)
  Receive Date: 20150825
  Receipt Date: 20160708
  Transmission Date: 20161109
  Serious: Yes (Hospitalization, Other)
  Sender: FDA-Public Use
  Company Number: CA-ROCHE-1625348

PATIENT
  Age: 61 Year
  Sex: Male

DRUGS (14)
  1. XOLAIR [Suspect]
     Active Substance: OMALIZUMAB
     Indication: ASTHMA
     Route: 058
     Dates: start: 20150810
  2. XOLAIR [Suspect]
     Active Substance: OMALIZUMAB
     Route: 058
  3. XOLAIR [Suspect]
     Active Substance: OMALIZUMAB
     Route: 058
     Dates: start: 20160601, end: 20160601
  4. COVERSYL [Concomitant]
     Active Substance: PERINDOPRIL
  5. PERINDOPRIL [Concomitant]
     Active Substance: PERINDOPRIL
  6. LASIX [Concomitant]
     Active Substance: FUROSEMIDE
     Route: 065
  7. XOLAIR [Suspect]
     Active Substance: OMALIZUMAB
     Route: 058
     Dates: start: 20160504
  8. NORVASC [Concomitant]
     Active Substance: AMLODIPINE BESYLATE
     Route: 065
  9. BRICANYL [Concomitant]
     Active Substance: TERBUTALINE SULFATE
  10. XOLAIR [Suspect]
     Active Substance: OMALIZUMAB
     Route: 058
     Dates: start: 20160113
  11. XOLAIR [Suspect]
     Active Substance: OMALIZUMAB
     Route: 058
     Dates: start: 20160406
  12. MONTELUKAST [Concomitant]
     Active Substance: MONTELUKAST SODIUM
  13. SYMBICORT [Concomitant]
     Active Substance: BUDESONIDE\FORMOTEROL FUMARATE DIHYDRATE
  14. SPIRIVA [Concomitant]
     Active Substance: TIOTROPIUM BROMIDE MONOHYDRATE

REACTIONS (12)
  - Nausea [Not Recovered/Not Resolved]
  - Emphysema [Unknown]
  - Malaise [Not Recovered/Not Resolved]
  - Weight decreased [Unknown]
  - Hypersensitivity [Not Recovered/Not Resolved]
  - Dizziness [Not Recovered/Not Resolved]
  - Bronchospasm [Unknown]
  - Blood creatinine increased [Unknown]
  - Asthenia [Unknown]
  - Asthma [Not Recovered/Not Resolved]
  - Fibrillary glomerulonephritis [Unknown]
  - Lung infection [Unknown]

NARRATIVE: CASE EVENT DATE: 20151016
